FAERS Safety Report 17903648 (Version 1)
Quarter: 2020Q2

REPORT INFORMATION
  Report Type: Spontaneous
  Country: US (occurrence: US)
  Receive Date: 20200616
  Receipt Date: 20200616
  Transmission Date: 20200714
  Serious: No
  Sender: FDA-Public Use
  Company Number: US-BAUSCH-BL-2020-016872

PATIENT
  Sex: Male

DRUGS (1)
  1. XIFAXAN [Suspect]
     Active Substance: RIFAXIMIN
     Indication: PRODUCT USED FOR UNKNOWN INDICATION
     Route: 065
     Dates: end: 202005

REACTIONS (4)
  - Inability to afford medication [Unknown]
  - Product distribution issue [Unknown]
  - Therapy interrupted [Unknown]
  - Malaise [Unknown]

NARRATIVE: CASE EVENT DATE: 202005
